FAERS Safety Report 17235407 (Version 2)
Quarter: 2020Q1

REPORT INFORMATION
  Report Type: Spontaneous
  Country: US (occurrence: US)
  Receive Date: 20200106
  Receipt Date: 20200123
  Transmission Date: 20200409
  Serious: No
  Sender: FDA-Public Use
  Company Number: US-BIOGEN-2019BI00770787

PATIENT
  Sex: Female

DRUGS (7)
  1. OCREVUS [Concomitant]
     Active Substance: OCRELIZUMAB
     Route: 065
     Dates: start: 201905
  2. TYSABRI [Suspect]
     Active Substance: NATALIZUMAB
     Route: 065
     Dates: end: 201712
  3. OCREVUS [Concomitant]
     Active Substance: OCRELIZUMAB
     Route: 065
     Dates: start: 201812
  4. TYSABRI [Suspect]
     Active Substance: NATALIZUMAB
     Indication: MULTIPLE SCLEROSIS
     Route: 042
     Dates: start: 20150708, end: 20171019
  5. OCREVUS [Concomitant]
     Active Substance: OCRELIZUMAB
     Indication: MULTIPLE SCLEROSIS
     Route: 065
     Dates: start: 20180101
  6. DALFAMPRIDINE. [Suspect]
     Active Substance: DALFAMPRIDINE
     Indication: GAIT DISTURBANCE
     Dosage: ASCEND BRAND
     Route: 065
  7. OCREVUS [Concomitant]
     Active Substance: OCRELIZUMAB
     Route: 065
     Dates: start: 20180710

REACTIONS (8)
  - General physical health deterioration [Unknown]
  - Gait disturbance [Unknown]
  - Peroneal nerve palsy [Unknown]
  - Memory impairment [Unknown]
  - Anxiety [Unknown]
  - Loss of control of legs [Unknown]
  - Magnetic resonance imaging abnormal [Unknown]
  - Arthritis [Unknown]
